FAERS Safety Report 12961353 (Version 1)
Quarter: 2016Q4

REPORT INFORMATION
  Report Type: Spontaneous
  Country: JP (occurrence: JP)
  Receive Date: 20161121
  Receipt Date: 20161121
  Transmission Date: 20170207
  Serious: Yes (Hospitalization)
  Sender: FDA-Public Use
  Company Number: JP-PFIZER INC-2016456969

PATIENT
  Age: 45 Year
  Sex: Female
  Weight: 51 kg

DRUGS (15)
  1. PREDNIN [Suspect]
     Active Substance: PREDNISOLONE SODIUM PHOSPHATE
     Dosage: 35 MG ONCE DAILY (AFTER BREAKFAST)
     Route: 048
     Dates: start: 201512
  2. BROTIZOLAM [Concomitant]
     Active Substance: BROTIZOLAM
     Dosage: 0.25 MG ONCE DAILY (BEFORE SLEEPING)
     Route: 048
     Dates: start: 201512
  3. VALIXA [Suspect]
     Active Substance: VALGANCICLOVIR
     Dosage: 450 MG ONCE DAILY (AFTER BREAKFAST)
     Route: 048
     Dates: start: 201512
  4. BAKTAR [Concomitant]
     Active Substance: SULFAMETHOXAZOLE\TRIMETHOPRIM
     Dosage: 1 TABLET ONCE DAILY (AFTER BREAKFAST)
     Route: 048
     Dates: start: 201512
  5. AVELOX [Concomitant]
     Active Substance: MOXIFLOXACIN HYDROCHLORIDE
     Dosage: 400 MG ONCE DAILY (AFTER BREAKFAST)
     Route: 048
     Dates: start: 20160229
  6. PROGRAF [Concomitant]
     Active Substance: TACROLIMUS\TACROLIMUS ANHYDROUS
     Dosage: 1 MG TWICE DAILY (AT 9 AM AND 9 PM)
     Route: 048
     Dates: start: 201512
  7. EDIROL [Concomitant]
     Active Substance: ELDECALCITOL
     Dosage: 0.75 UG ONCE DAILY (AFTER BREAKFAST)
     Route: 048
     Dates: start: 201512
  8. MUCOSTA [Concomitant]
     Active Substance: REBAMIPIDE
     Dosage: 1 GTT 4 TIMES DAILY
     Route: 047
     Dates: start: 201512
  9. MAGNESIUM OXIDE. [Concomitant]
     Active Substance: MAGNESIUM OXIDE
     Indication: CONSTIPATION
     Dosage: 660 MG AS NEEDED
     Route: 048
     Dates: start: 201512
  10. IRBETAN [Concomitant]
     Active Substance: IRBESARTAN
     Dosage: 100 MG ONCE DAILY (AFTER DINNER)
     Route: 048
     Dates: start: 201512
  11. BONALON [Concomitant]
     Active Substance: ALENDRONATE SODIUM
     Dosage: 35 MG EVERY SUNDAY (UPON WAKING)
     Route: 048
     Dates: start: 201512
  12. VFEND [Suspect]
     Active Substance: VORICONAZOLE
     Indication: BRONCHOPULMONARY ASPERGILLOSIS
     Dosage: 200 MG ONCE DAILY (2 HOURS LATER FROM HAVING BREAKFAST)
     Route: 048
     Dates: start: 201512
  13. CODEINE PHOSPHATE [Concomitant]
     Active Substance: CODEINE PHOSPHATE
     Dosage: 60 MG DAILY
     Route: 048
     Dates: start: 201512
  14. NEXIUM [Concomitant]
     Active Substance: ESOMEPRAZOLE MAGNESIUM
     Dosage: 20 MG ONCE DAILY (BEFORE SLEEPING)
     Route: 048
     Dates: start: 201512
  15. URSO [Concomitant]
     Active Substance: URSODIOL
     Dosage: 200 MG THRICE DAILY (AFTER EACH MEAL)
     Route: 048
     Dates: start: 201512

REACTIONS (6)
  - Blood bilirubin increased [Recovered/Resolved]
  - Blood alkaline phosphatase increased [Unknown]
  - Pneumonia influenzal [Recovered/Resolved]
  - Alanine aminotransferase increased [Unknown]
  - Aspartate aminotransferase increased [Unknown]
  - Gamma-glutamyltransferase increased [Unknown]

NARRATIVE: CASE EVENT DATE: 201602
